FAERS Safety Report 16072195 (Version 2)
Quarter: 2019Q3

REPORT INFORMATION
  Report Type: Spontaneous
  Country: US (occurrence: US)
  Receive Date: 20190314
  Receipt Date: 20190719
  Transmission Date: 20191004
  Serious: No
  Sender: FDA-Public Use
  Company Number: US-SA-2019SA070378

PATIENT
  Age: 36 Year
  Sex: Female

DRUGS (3)
  1. DUPIXENT [Suspect]
     Active Substance: DUPILUMAB
     Indication: DERMATITIS ATOPIC
     Dosage: 300 MG, QOW
     Route: 058
     Dates: start: 201804
  2. DESONIDE. [Concomitant]
     Active Substance: DESONIDE
     Indication: CONJUNCTIVITIS ALLERGIC
     Dosage: 0.05 %, BID
     Route: 061
     Dates: start: 20190129, end: 20190212
  3. HYDROXYZINE HCL [Concomitant]
     Active Substance: HYDROXYZINE HYDROCHLORIDE
     Indication: CONJUNCTIVITIS ALLERGIC
     Dosage: 10 MG,PRN,  NIGHTLY
     Route: 048
     Dates: start: 20190129

REACTIONS (4)
  - Rash erythematous [Unknown]
  - Conjunctivitis allergic [Recovered/Resolved]
  - Eye swelling [Recovered/Resolved]
  - Eye discharge [Recovered/Resolved]

NARRATIVE: CASE EVENT DATE: 201807
